FAERS Safety Report 7142179-7 (Version None)
Quarter: 2010Q4

REPORT INFORMATION
  Report Type: 
  Country: None (occurrence: None)
  Receive Date: 20101112
  Receipt Date: 20100928
  Transmission Date: 20110411
  Serious: No
  Sender: FDA-Public Use
  Company Number: 1000016500

PATIENT
  Sex: Male

DRUGS (1)
  1. SAVELLA [Suspect]
     Indication: FIBROMYALGIA

REACTIONS (3)
  - FATIGUE [None]
  - PAIN [None]
  - PARAESTHESIA [None]
